FAERS Safety Report 10632626 (Version 1)
Quarter: 2014Q4

REPORT INFORMATION
  Report Type: Spontaneous
  Country: IT (occurrence: None)
  Receive Date: 20141203
  Receipt Date: 20141203
  Transmission Date: 20150529
  Serious: Yes (Other)
  Sender: FDA-Public Use
  Company Number: 2014-IT-013227

PATIENT
  Age: 8 Year
  Sex: Male

DRUGS (5)
  1. ERWINASE (ASPARAGINASE ERWINIA CHRYSANTHEMI) INJECTION [Suspect]
     Active Substance: ASPARAGINASE ERWINIA CHRYSANTHEMI
     Indication: ACUTE LYMPHOCYTIC LEUKAEMIA
     Route: 042
     Dates: start: 20140812, end: 20140825
  2. VELCADE [Concomitant]
     Active Substance: BORTEZOMIB
  3. RITUXIMAB (RITUXIMAB) [Concomitant]
     Active Substance: RITUXIMAB
  4. DEXAMETHASONE. [Concomitant]
     Active Substance: DEXAMETHASONE
  5. VINCRISTINE (VINCRISTINE SULFATE) [Concomitant]
     Active Substance: VINCRISTINE SULFATE

REACTIONS (1)
  - Pain in extremity [None]

NARRATIVE: CASE EVENT DATE: 20140818
